FAERS Safety Report 6390017-2 (Version None)
Quarter: 2009Q4

REPORT INFORMATION
  Report Type: 
  Country: None (occurrence: None)
  Receive Date: 20091006
  Receipt Date: 20090928
  Transmission Date: 20100525
  Serious: Yes (Hospitalization, Other)
  Sender: FDA-Public Use
  Company Number: PHHY2009AU37046

PATIENT
  Sex: Male

DRUGS (1)
  1. CLOZARIL [Suspect]
     Indication: SCHIZOPHRENIA
     Dosage: 500 MG, UNK
     Route: 048
     Dates: start: 19971030

REACTIONS (6)
  - IRRITABILITY [None]
  - MENTAL DISORDER [None]
  - NEUTROPHIL COUNT INCREASED [None]
  - THERAPY CESSATION [None]
  - THINKING ABNORMAL [None]
  - WHITE BLOOD CELL COUNT INCREASED [None]
